FAERS Safety Report 5839120-3 (Version None)
Quarter: 2008Q3

REPORT INFORMATION
  Report Type: 
  Country: None (occurrence: None)
  Receive Date: 20080808
  Receipt Date: 20080727
  Transmission Date: 20090109
  Serious: Yes (Other)
  Sender: FDA-Public Use
  Company Number: US-PFIZER INC-2008063290

PATIENT

DRUGS (2)
  1. CHANTIX [Suspect]
  2. ALL OTHER THERAPEUTIC PRODUCTS [Suspect]

REACTIONS (5)
  - CONSTIPATION [None]
  - EMOTIONAL DISORDER [None]
  - MIGRAINE [None]
  - NAUSEA [None]
  - SURGERY [None]
